FAERS Safety Report 5850422-7 (Version None)
Quarter: 2008Q3

REPORT INFORMATION
  Report Type: 
  Country: None (occurrence: None)
  Receive Date: 20080819
  Receipt Date: 20080813
  Transmission Date: 20090109
  Serious: Yes (Other)
  Sender: FDA-Public Use
  Company Number: JP-PFIZER INC-2008067902

PATIENT
  Age: 46 Year
  Sex: Male

DRUGS (1)
  1. LIPITOR [Suspect]
     Route: 048
     Dates: start: 20080712, end: 20080729

REACTIONS (1)
  - AGRANULOCYTOSIS [None]
